FAERS Safety Report 8179666-9 (Version None)
Quarter: 2012Q1

REPORT INFORMATION
  Report Type: 
  Country: None (occurrence: None)
  Receive Date: 20120302
  Receipt Date: 20120222
  Transmission Date: 20120608
  Serious: Yes (Life-Threatening, Hospitalization, Other)
  Sender: FDA-Public Use
  Company Number: IL-SANOFI-AVENTIS-2011SA078958

PATIENT
  Age: 62 Year
  Sex: Male

DRUGS (50)
  1. BETA BLOCKING AGENTS [Concomitant]
     Dosage: FIRST REPORTED ON 04 JULY 2011
     Dates: start: 20110327
  2. ACE INHIBITOR NOS [Concomitant]
     Dosage: FIRST REPORTED ON 22 DECEMBER 2010
     Dates: start: 20111222
  3. HMG COA REDUCTASE INHIBITORS [Concomitant]
     Dates: start: 20110327
  4. PLAVIX [Suspect]
     Route: 065
     Dates: start: 20110327
  5. OPTALGIN [Concomitant]
     Dosage: THERPAY END DATE: 10 FEB 2012
     Dates: start: 20120202
  6. RULID [Concomitant]
     Dates: start: 20110922, end: 20111010
  7. CEFUROXIME [Concomitant]
     Dates: start: 20111007, end: 20111010
  8. FERROCAL [Concomitant]
     Dates: start: 20111021
  9. SIMVASTATIN [Concomitant]
     Dosage: FIRST REPORTED ON 04 JULY 2011
     Dates: end: 20110925
  10. ALDOSTERONE [Concomitant]
     Dosage: FIRST REPORTED ON 27 MARCH 2011
     Dates: start: 20110704
  11. PLATELET AGGREGATION INHIBITORS [Concomitant]
     Dosage: FIRST REPORTED ON 04 JULY 2011
     Dates: start: 20110327
  12. HMG COA REDUCTASE INHIBITORS [Concomitant]
     Dates: start: 20110704
  13. PLAVIX [Suspect]
     Route: 065
     Dates: start: 20111128
  14. LANTUS [Concomitant]
  15. TRAMADEX [Concomitant]
     Dates: start: 20120207
  16. SIMVASTATIN [Concomitant]
     Dosage: FIRST REPORTED ON 27 MARCH 2011
     Dates: end: 20110925
  17. DIURETICS [Concomitant]
     Dosage: FIRST REPORTED ON 22 DECEMBER2010
     Dates: start: 20101222
  18. PLAVIX [Suspect]
     Route: 065
     Dates: start: 20101222
  19. RAMIPRIL [Concomitant]
  20. AEROVENT [Concomitant]
     Dates: start: 20110929
  21. ALL OTHER THERAPEUTIC PRODUCTS [Concomitant]
     Dosage: FIRST REPORTED ON 22 DECEMBER 2010
     Dates: start: 20111222
  22. ROCEPHIN [Concomitant]
     Dates: start: 20110929, end: 20111006
  23. BISOPROLOL FUMARATE [Concomitant]
  24. SIMVASTATIN [Concomitant]
     Dosage: FIRST REPORTED ON 22 DECEMBER 2010
     Dates: end: 20110925
  25. LIPITOR [Concomitant]
     Dates: start: 20110926
  26. ANTITHROMBOTIC AGENTS [Concomitant]
     Dosage: FIRST REPORTED ON 04 JULY 2011
     Dates: start: 20110704
  27. PLATELET AGGREGATION INHIBITORS [Concomitant]
     Dosage: FIRST REPORTED ON 22 DECEMBER2010
     Dates: start: 20101222
  28. ACE INHIBITOR NOS [Concomitant]
     Dates: start: 20110327
  29. NYSTATIN [Concomitant]
     Dosage: THERAPY END DATE: 16 FEB 2012
     Dates: start: 20120209, end: 20120216
  30. DIURETICS [Concomitant]
     Dosage: FIRST REPORTED ON 27 MARCH 2011
     Dates: start: 20110704
  31. PLATELET AGGREGATION INHIBITORS [Concomitant]
     Dosage: FIRST REPORTED ON 27 MARCH 2011
     Dates: start: 20110704
  32. HMG COA REDUCTASE INHIBITORS [Concomitant]
     Dosage: FIRST REPORTED ON 22 DECEMBER 2010
     Dates: start: 20101222
  33. PLAVIX [Suspect]
     Route: 065
     Dates: end: 20110704
  34. APIDRA [Concomitant]
  35. ZINACEF /UNK/ [Concomitant]
     Dates: start: 20110923, end: 20110929
  36. SOLU-MEDROL [Concomitant]
     Dosage: THERAPY END DATE: 10 FEB 2012
     Dates: start: 20120208, end: 20120210
  37. CIPRODEX [Concomitant]
     Dates: start: 20111024, end: 20111102
  38. ANTITHROMBOTIC AGENTS [Concomitant]
     Dosage: FIRST REPORTED ON22 DEC 2010
     Dates: start: 20110327
  39. ANTITHROMBOTIC AGENTS [Concomitant]
     Dates: start: 20101222
  40. BETA BLOCKING AGENTS [Concomitant]
     Dosage: FIRST REPORTED ON 27 MARCH 2011
     Dates: start: 20110704
  41. ACE INHIBITOR NOS [Concomitant]
     Dosage: FIRST REPORTED ON 04 JULY 2011
     Dates: start: 20110704
  42. COUMADIN [Concomitant]
     Dates: end: 20110922
  43. ASPIRIN [Concomitant]
     Dates: start: 20110924
  44. AMIKACIN [Concomitant]
     Dates: start: 20111021, end: 20111023
  45. OMEPRADEX [Concomitant]
     Dates: start: 20111002
  46. BEZALIP [Concomitant]
     Dates: start: 20110926
  47. BETA BLOCKING AGENTS [Concomitant]
     Dosage: FIRST REPORTED ON 22 DECEMBER2010
     Dates: start: 20101222
  48. DIURETICS [Concomitant]
     Dosage: FIRST REPORTED ON 04 JULY 2011
     Dates: start: 20110327
  49. ALDOSTERONE [Concomitant]
     Dosage: FIRST REPORTED ON 22 DECEMBER 2010
     Dates: start: 20101222
  50. ALDOSTERONE [Concomitant]
     Dosage: FIRST REPORTED ON 04 JULY 2011
     Dates: start: 20110327

REACTIONS (16)
  - HAEMOPTYSIS [None]
  - PNEUMONIA [None]
  - WEGENER'S GRANULOMATOSIS [None]
  - GASTROINTESTINAL HAEMORRHAGE [None]
  - SEPSIS [None]
  - ACUTE RESPIRATORY FAILURE [None]
  - RENAL FAILURE [None]
  - COUGH [None]
  - ANAEMIA [None]
  - CARDIAC FAILURE CONGESTIVE [None]
  - PYREXIA [None]
  - DYSPNOEA [None]
  - HAEMOGLOBIN DECREASED [None]
  - BLOOD UREA INCREASED [None]
  - MYALGIA [None]
  - MELAENA [None]
